FAERS Safety Report 24537924 (Version 1)
Quarter: 2024Q4

REPORT INFORMATION
  Report Type: Spontaneous
  Country: IN (occurrence: IN)
  Receive Date: 20241023
  Receipt Date: 20241023
  Transmission Date: 20250114
  Serious: Yes (Other)
  Sender: SANDOZ
  Company Number: IN-MLMSERVICE-20190725-1870407-1

PATIENT
  Age: 30 Year
  Sex: Male

DRUGS (2)
  1. MOXIFLOXACIN [Suspect]
     Active Substance: MOXIFLOXACIN
     Indication: Disseminated tuberculosis
     Route: 065
  2. ISONIAZID [Concomitant]
     Active Substance: ISONIAZID
     Indication: Disseminated tuberculosis
     Dosage: UNK
     Route: 065

REACTIONS (5)
  - Leukopenia [Recovered/Resolved]
  - Neutropenia [Recovered/Resolved]
  - Cytopenia [Recovered/Resolved]
  - Drug hypersensitivity [Recovered/Resolved]
  - Product use in unapproved indication [Unknown]
